FAERS Safety Report 5848461-5 (Version None)
Quarter: 2008Q3

REPORT INFORMATION
  Report Type: 
  Country: None (occurrence: None)
  Receive Date: 20080814
  Receipt Date: 20080731
  Transmission Date: 20090109
  Serious: No
  Sender: FDA-Public Use
  Company Number: 2008-181507-NL

PATIENT
  Age: 44 Year
  Sex: Female

DRUGS (1)
  1. MARVELON [Suspect]
     Dosage: 1 DF ORAL
     Route: 048
     Dates: start: 20080613, end: 20080626

REACTIONS (3)
  - FEELING ABNORMAL [None]
  - HEADACHE [None]
  - SPEECH DISORDER [None]
